FAERS Safety Report 25572064 (Version 1)
Quarter: 2025Q3

REPORT INFORMATION
  Report Type: Spontaneous
  Country: GB (occurrence: GB)
  Receive Date: 20250717
  Receipt Date: 20250717
  Transmission Date: 20251021
  Serious: Yes (Other)
  Sender: PFIZER
  Company Number: None

PATIENT
  Sex: Female

DRUGS (1)
  1. METHOTREXATE SODIUM [Suspect]
     Active Substance: METHOTREXATE SODIUM
     Dates: start: 20250505, end: 20250714

REACTIONS (2)
  - Mouth ulceration [Recovered/Resolved]
  - Gingival ulceration [Unknown]

NARRATIVE: CASE EVENT DATE: 20250501
